FAERS Safety Report 9213252 (Version 1)
Quarter: 2013Q2

REPORT INFORMATION
  Report Type: Report from Study
  Country: US (occurrence: US)
  Receive Date: 20130405
  Receipt Date: 20130405
  Transmission Date: 20140414
  Serious: Yes (Other)
  Sender: FDA-Public Use
  Company Number: US-JNJFOC-20130402689

PATIENT
  Age: 14 Year
  Sex: Female
  Weight: 29 kg

DRUGS (11)
  1. CISAPRIDE [Suspect]
     Indication: GASTROINTESTINAL MOTILITY DISORDER
     Route: 050
     Dates: start: 20120319
  2. CISAPRIDE [Suspect]
     Indication: GASTROINTESTINAL MOTILITY DISORDER
     Dosage: 0.1 MG/KG, 2.5 MG QID??VIA G TUBE
     Route: 050
     Dates: start: 20130320, end: 20130326
  3. CISAPRIDE [Suspect]
     Indication: GASTROOESOPHAGEAL REFLUX DISEASE
     Route: 050
     Dates: start: 20120319
  4. CISAPRIDE [Suspect]
     Indication: GASTROOESOPHAGEAL REFLUX DISEASE
     Dosage: 0.1 MG/KG, 2.5 MG QID??VIA G TUBE
     Route: 050
     Dates: start: 20130320, end: 20130326
  5. PERIACTIN [Concomitant]
     Indication: VOMITING
     Route: 050
  6. LAMICTAL [Concomitant]
     Indication: CONVULSION
     Route: 050
  7. TRILEPTAL [Concomitant]
     Indication: CONVULSION
     Route: 050
  8. DILANTIN [Concomitant]
     Indication: CONVULSION
     Dosage: QID OR AS NEEDED
     Route: 050
  9. MIRALAX [Concomitant]
     Indication: CONSTIPATION
     Dosage: QID OR AS NEEDED
     Route: 050
  10. OMEPRAZOLE [Concomitant]
     Indication: GASTROOESOPHAGEAL REFLUX DISEASE
     Route: 050
  11. DIAZEPAM [Concomitant]
     Indication: CONVULSION
     Route: 054

REACTIONS (1)
  - Electrocardiogram QT prolonged [Unknown]
